FAERS Safety Report 24345215 (Version 1)
Quarter: 2024Q3

REPORT INFORMATION
  Report Type: Report from Study
  Country: PH (occurrence: PH)
  Receive Date: 20240920
  Receipt Date: 20240920
  Transmission Date: 20241017
  Serious: Yes (Hospitalization)
  Sender: PFIZER
  Company Number: PH-PFIZER INC-PV202400121901

PATIENT
  Age: 56 Year
  Sex: Female
  Weight: 48 kg

DRUGS (16)
  1. VINCRISTINE SULFATE [Suspect]
     Active Substance: VINCRISTINE SULFATE
     Indication: Diffuse large B-cell lymphoma
     Dosage: 1.4 MG, EVERY 21 DAYS
     Route: 042
     Dates: start: 20220823
  2. VINCRISTINE SULFATE [Suspect]
     Active Substance: VINCRISTINE SULFATE
     Dosage: EVERY 21 DAYS
     Route: 042
     Dates: start: 20221207
  3. RITUXIMAB [Suspect]
     Active Substance: RITUXIMAB
     Indication: Diffuse large B-cell lymphoma
     Dosage: 375 MG, EVERY 21 DAYS
     Route: 042
     Dates: start: 20220823
  4. RITUXIMAB [Suspect]
     Active Substance: RITUXIMAB
     Dosage: EVERY 21 DAYS
     Route: 042
     Dates: start: 20221207
  5. DOXORUBICIN HYDROCHLORIDE [Suspect]
     Active Substance: DOXORUBICIN HYDROCHLORIDE
     Indication: Diffuse large B-cell lymphoma
     Dosage: 50 MG, EVERY 21 DAYS
     Route: 042
     Dates: start: 20220823
  6. DOXORUBICIN HYDROCHLORIDE [Suspect]
     Active Substance: DOXORUBICIN HYDROCHLORIDE
     Dosage: 40 MG, EVERY 21 DAYS
     Route: 042
     Dates: start: 20221116
  7. DOXORUBICIN HYDROCHLORIDE [Suspect]
     Active Substance: DOXORUBICIN HYDROCHLORIDE
     Dosage: EVERY 21 DAYS
     Route: 042
     Dates: start: 20221207
  8. CYCLOPHOSPHAMIDE [Suspect]
     Active Substance: CYCLOPHOSPHAMIDE
     Indication: Diffuse large B-cell lymphoma
     Dosage: 750 MG, EVERY 21 DYAS
     Route: 042
     Dates: start: 20220823
  9. CYCLOPHOSPHAMIDE [Suspect]
     Active Substance: CYCLOPHOSPHAMIDE
     Dosage: 600 MG, EVERY 21 DYAS
     Route: 042
     Dates: start: 20221116
  10. CYCLOPHOSPHAMIDE [Suspect]
     Active Substance: CYCLOPHOSPHAMIDE
     Dosage: EVERY 21 DYAS
     Route: 042
     Dates: start: 20221207
  11. PREDNISOLONE [Suspect]
     Active Substance: PREDNISOLONE
     Indication: Diffuse large B-cell lymphoma
     Dosage: 100 MG, EVERY 21 DAYS
     Route: 048
     Dates: start: 20220823
  12. INVESTIGATIONAL PRODUCT [Suspect]
     Active Substance: INVESTIGATIONAL PRODUCT
     Indication: Diffuse large B-cell lymphoma
     Dosage: TAFASITAMAB VS PLACEBO/LENALIDOMIDE VS PLACEBO
     Dates: start: 20220823
  13. INVESTIGATIONAL PRODUCT [Suspect]
     Active Substance: INVESTIGATIONAL PRODUCT
     Dosage: TAFASITAMAB VS PLACEBO/LENALIDOMIDE VS PLACEBO
     Dates: start: 20221102
  14. INVESTIGATIONAL PRODUCT [Suspect]
     Active Substance: INVESTIGATIONAL PRODUCT
     Dosage: TAFASITAMAB VS PLACEBO/LENALIDOMIDE VS PLACEBOUNK
     Dates: start: 20221109
  15. INVESTIGATIONAL PRODUCT [Suspect]
     Active Substance: INVESTIGATIONAL PRODUCT
     Dosage: TAFASITAMAB VS PLACEBO/LENALIDOMIDE VS PLACEBO
     Dates: start: 20221207
  16. LOSARTAN POTASSIUM [Concomitant]
     Active Substance: LOSARTAN POTASSIUM
     Dosage: UNK
     Dates: start: 2018

REACTIONS (3)
  - Gastroenteritis [Recovered/Resolved]
  - Neutropenia [Recovered/Resolved]
  - Anaemia [Recovered/Resolved]

NARRATIVE: CASE EVENT DATE: 20221102
